FAERS Safety Report 25762866 (Version 2)
Quarter: 2025Q3

REPORT INFORMATION
  Report Type: Report from Study
  Country: JP (occurrence: JP)
  Receive Date: 20250904
  Receipt Date: 20250911
  Transmission Date: 20251021
  Serious: Yes (Other)
  Sender: TAKEDA
  Company Number: JP-TAKEDA-2025TJP008970

PATIENT
  Age: 8 Decade
  Sex: Male

DRUGS (1)
  1. VONICOG ALFA [Suspect]
     Active Substance: VONICOG ALFA
     Indication: Von Willebrand^s disease
     Dosage: 3900 INTERNATIONAL UNIT, 1/WEEK

REACTIONS (1)
  - Lung carcinoma cell type unspecified stage IV [Not Recovered/Not Resolved]
